FAERS Safety Report 5387847-2 (Version None)
Quarter: 2007Q3

REPORT INFORMATION
  Report Type: 
  Country: None (occurrence: None)
  Receive Date: 20070716
  Receipt Date: 20060724
  Transmission Date: 20080115
  Serious: No
  Sender: FDA-Public Use
  Company Number: A0613071A

PATIENT
  Age: 69 Year
  Sex: Male

DRUGS (2)
  1. NICORETTE (MINT) [Suspect]
     Dates: start: 20060101
  2. NICORETTE [Suspect]
     Dates: start: 20060101

REACTIONS (1)
  - INTENTIONAL DRUG MISUSE [None]
